FAERS Safety Report 21310908 (Version 1)
Quarter: 2022Q3

REPORT INFORMATION
  Report Type: Report from Study
  Country: US (occurrence: None)
  Receive Date: 20220909
  Receipt Date: 20220909
  Transmission Date: 20221027
  Serious: Yes (Other)
  Sender: FDA-Public Use
  Company Number: 2022A306467

PATIENT
  Age: 35 Year
  Sex: Female

DRUGS (1)
  1. CALQUENCE [Suspect]
     Active Substance: ACALABRUTINIB
     Route: 048

REACTIONS (6)
  - Cardiotoxicity [Unknown]
  - Gastrointestinal toxicity [Unknown]
  - Hypertension [Unknown]
  - Anaemia [Unknown]
  - Atrial fibrillation [Unknown]
  - Headache [Unknown]
